FAERS Safety Report 7444947-0 (Version None)
Quarter: 2011Q2

REPORT INFORMATION
  Report Type: 
  Country: None (occurrence: None)
  Receive Date: 20110429
  Receipt Date: 20110425
  Transmission Date: 20111010
  Serious: Yes (Hospitalization)
  Sender: FDA-Public Use
  Company Number: PHHY2011US35733

PATIENT
  Age: 21 Year
  Sex: Female

DRUGS (1)
  1. TOBI [Suspect]
     Dosage: 300 MG, BID 28 DAYS ON AND 28 DAYS OFF
     Dates: start: 20110331

REACTIONS (1)
  - CYSTIC FIBROSIS [None]
